FAERS Safety Report 5799376-2 (Version None)
Quarter: 2008Q3

REPORT INFORMATION
  Report Type: 
  Country: None (occurrence: None)
  Receive Date: 20080703
  Receipt Date: 20080620
  Transmission Date: 20090109
  Serious: Yes (Other)
  Sender: FDA-Public Use
  Company Number: US-PFIZER INC-2008053441

PATIENT
  Sex: Female
  Weight: 54 kg

DRUGS (8)
  1. CHANTIX [Suspect]
     Indication: SMOKING CESSATION THERAPY
     Dates: start: 20080401, end: 20080501
  2. METHOTREXATE [Concomitant]
  3. REMICADE [Concomitant]
  4. MONTELUKAST SODIUM [Concomitant]
  5. HYDROCHLOROTHIAZIDE [Concomitant]
  6. ALTACE [Concomitant]
  7. CRESTOR [Concomitant]
  8. FOLIC ACID [Concomitant]

REACTIONS (2)
  - HYPERSENSITIVITY [None]
  - SKIN REACTION [None]
